FAERS Safety Report 4308981-1 (Version None)
Quarter: 2004Q1

REPORT INFORMATION
  Report Type: 
  Country: None (occurrence: None)
  Receive Date: 20040302
  Receipt Date: 20040223
  Transmission Date: 20041129
  Serious: Yes (Hospitalization)
  Sender: FDA-Public Use
  Company Number: US-BRISTOL-MYERS SQUIBB COMPANY-12514634

PATIENT
  Age: 78 Year
  Sex: Male
  Weight: 92 kg

DRUGS (6)
  1. COUMADIN [Suspect]
     Indication: ATRIAL FIBRILLATION
     Dosage: 2.5 MG ON TUES + SAT, 1/2 OF 2.5 MG TABLET ON MON, WED AND FRI.COUMADIN HELD X 2 DAYS
     Route: 048
     Dates: start: 20031101
  2. ATENOLOL [Concomitant]
     Dosage: 1.5 OF A 25MG TABLET
     Route: 048
  3. DOXAZOSIN MESYLATE [Concomitant]
     Route: 048
  4. ASPIRIN [Concomitant]
     Route: 048
  5. GLUCOTROL XL [Concomitant]
  6. GLUCOPHAGE [Concomitant]
     Route: 048

REACTIONS (5)
  - CONTUSION [None]
  - FALL [None]
  - LOSS OF CONSCIOUSNESS [None]
  - PROTHROMBIN TIME PROLONGED [None]
  - PYREXIA [None]
